FAERS Safety Report 4819596-0 (Version None)
Quarter: 2005Q4

REPORT INFORMATION
  Report Type: 
  Country: None (occurrence: None)
  Receive Date: 20051103
  Receipt Date: 20050825
  Transmission Date: 20060501
  Serious: Yes (Hospitalization)
  Sender: FDA-Public Use
  Company Number: HQWYE129426AUG05

PATIENT
  Sex: Female

DRUGS (17)
  1. ENBREL [Suspect]
     Indication: RHEUMATOID ARTHRITIS
     Route: 058
     Dates: start: 20050531, end: 20050719
  2. RHEUMATREX [Concomitant]
     Dates: start: 20030319
  3. RHEUMATREX [Concomitant]
     Dates: start: 20030401
  4. RHEUMATREX [Concomitant]
     Dates: start: 20030808
  5. RHEUMATREX [Concomitant]
     Dates: start: 20050901
  6. PREDONINE [Concomitant]
     Dates: start: 20030319
  7. TIZANIDINE HCL [Concomitant]
     Dates: start: 20030319
  8. SENNA LEAF [Concomitant]
     Dates: start: 20030319
  9. BROTIZOLAM [Concomitant]
     Dates: start: 20030319
  10. SELBEX [Concomitant]
     Dates: start: 20030319
  11. VOLTAREN [Concomitant]
     Dates: start: 20030319
  12. ETIZOLAM [Concomitant]
     Dates: start: 20030319
  13. AMLODIPINE BESYLATE [Concomitant]
     Dates: start: 20030319
  14. ACHILLEA [Concomitant]
     Dates: start: 20030319
  15. SENNA FRUIT [Concomitant]
     Dates: start: 20030319
  16. SENNA LEAF [Concomitant]
     Dates: start: 20030319
  17. POLARAMINE [Concomitant]
     Dates: start: 20030319

REACTIONS (2)
  - OVARIAN CANCER [None]
  - RASH GENERALISED [None]
